FAERS Safety Report 9248936 (Version 2)
Quarter: 2013Q3

REPORT INFORMATION
  Report Type: Spontaneous
  Country: JP (occurrence: JP)
  Receive Date: 20130423
  Receipt Date: 20130712
  Transmission Date: 20140515
  Serious: Yes (Other)
  Sender: FDA-Public Use
  Company Number: JP-BAYER-2013-047767

PATIENT
  Age: 83 Year
  Sex: Male

DRUGS (19)
  1. NEXAVAR [Suspect]
     Indication: HEPATOCELLULAR CARCINOMA
     Dosage: 200 MG, BID
     Route: 048
     Dates: start: 20130226, end: 20130228
  2. BROTIZOLAM [Concomitant]
     Indication: INSOMNIA
     Dosage: 0.25 MG, QD
     Route: 048
     Dates: start: 20120225, end: 20120228
  3. ARICEPT [Concomitant]
     Dosage: 5 MG, OM
     Route: 048
  4. BAYASPIRIN [Concomitant]
     Dosage: 100 MG, OM
     Route: 048
  5. CODIOVAN [Concomitant]
     Dosage: 1 DF, OM
     Route: 048
  6. DIOVAN [Concomitant]
     Dosage: 80 MG, OM
     Route: 048
  7. HYDROCHLOROTHIAZIDE [Concomitant]
     Dosage: UNK
     Route: 048
  8. AMLODIPINE [Concomitant]
     Dosage: 5 MG, OM
     Route: 048
  9. AMLODIPINE BESILATE [Concomitant]
     Dosage: 5 MG, OM
     Route: 048
  10. LANIRAPID [Concomitant]
     Dosage: 0.05 MG, OM
     Route: 048
  11. LIVALO [Concomitant]
     Dosage: 2 MG, QD
     Route: 048
  12. DIASERA L [Concomitant]
     Dosage: 20 MG, BID
     Route: 048
  13. ISOSORBIDE MONONITRATE [Concomitant]
     Dosage: 20 MG, BID
     Route: 048
  14. FUROSEMIDE [Concomitant]
     Dosage: 20 MG, BID
     Route: 048
  15. LANSOPRAZOLE [Concomitant]
     Dosage: 30 MG, OM
     Route: 048
  16. TAKEPRON [Concomitant]
     Dosage: 30 MG, OM
     Route: 048
  17. MUCOSTA [Concomitant]
     Dosage: 100 MG, TID
     Route: 048
  18. REBAMIPIDE [Concomitant]
     Dosage: 100 MG, TID
     Route: 048
  19. EPADEL [Concomitant]
     Dosage: 1 DF, BID
     Route: 048

REACTIONS (2)
  - Tumour lysis syndrome [Recovered/Resolved]
  - Pancreatitis acute [Recovering/Resolving]
